FAERS Safety Report 24264011 (Version 2)
Quarter: 2024Q4

REPORT INFORMATION
  Report Type: Spontaneous
  Country: DK (occurrence: DK)
  Receive Date: 20240829
  Receipt Date: 20241017
  Transmission Date: 20250114
  Serious: Yes (Hospitalization)
  Sender: PFIZER
  Company Number: DK-ROCHE-10000056036

PATIENT
  Age: 50 Year
  Sex: Female
  Weight: 86.5 kg

DRUGS (87)
  1. DOXORUBICIN HYDROCHLORIDE [Suspect]
     Active Substance: DOXORUBICIN HYDROCHLORIDE
     Indication: Diffuse large B-cell lymphoma
     Dosage: 104 MG, EVERY 3 WEEKS
     Route: 042
     Dates: start: 20240724
  2. RITUXIMAB [Suspect]
     Active Substance: RITUXIMAB
     Indication: Diffuse large B-cell lymphoma
     Dosage: 800 MG, EVERY 3 WEEKS
     Route: 042
     Dates: start: 20240724
  3. CYCLOPHOSPHAMIDE [Suspect]
     Active Substance: CYCLOPHOSPHAMIDE
     Indication: Diffuse large B-cell lymphoma
     Dosage: 1553 MG, EVERY 3 WEEKS (STRENGTH 1000 MG / 1 EA)
     Route: 042
     Dates: start: 20240724
  4. POLATUZUMAB VEDOTIN [Suspect]
     Active Substance: POLATUZUMAB VEDOTIN
     Indication: Diffuse large B-cell lymphoma
     Dosage: 166 MG, EVERY 3 WEEKS
     Route: 042
     Dates: start: 20240725
  5. PREDNISOLONE [Suspect]
     Active Substance: PREDNISOLONE
     Indication: Diffuse large B-cell lymphoma
     Dosage: START DATE OF MOST RECENT DOSE OF STUDY DRUG PRIOR TO AE: 28-JUL-2024
     Route: 048
     Dates: start: 20240724
  6. GENTAMICIN [Concomitant]
     Active Substance: GENTAMICIN
     Indication: Infection
     Dosage: 360 MG, 1X/DAY
     Route: 042
     Dates: start: 20240811, end: 20240812
  7. PREDNISOLONE [Concomitant]
     Active Substance: PREDNISOLONE
     Indication: Non-Hodgkin^s lymphoma
     Dosage: 100 MG EVERY 3 WEEKS (START DATE OF MOST RECENT DOSE OF STUDY DRUG PRIOR TO AE: 28JUL2024)
     Route: 048
     Dates: start: 20240724
  8. PREDNISOLONE [Concomitant]
     Active Substance: PREDNISOLONE
     Route: 048
     Dates: start: 20240731, end: 20240731
  9. PREDNISOLONE [Concomitant]
     Active Substance: PREDNISOLONE
     Route: 048
     Dates: start: 20240729, end: 20240729
  10. PREDNISOLONE [Concomitant]
     Active Substance: PREDNISOLONE
     Route: 048
     Dates: start: 20240716, end: 20240723
  11. PREDNISOLONE [Concomitant]
     Active Substance: PREDNISOLONE
     Route: 048
     Dates: start: 20240730, end: 20240730
  12. MORPHINE SULFATE [Concomitant]
     Active Substance: MORPHINE SULFATE
     Indication: Pain
     Dosage: 20 MG, 2X/DAY
     Route: 048
     Dates: start: 20240624, end: 20240719
  13. OZEMPIC [Concomitant]
     Active Substance: SEMAGLUTIDE
     Indication: Diabetes mellitus
     Dosage: 1 MG, WEEKLY
     Route: 058
     Dates: start: 20230713, end: 20240724
  14. PEGFILGRASTIM [Concomitant]
     Active Substance: PEGFILGRASTIM
     Dosage: 6 MG, 1X/DAY
     Route: 058
     Dates: start: 20240727, end: 20240727
  15. PEGFILGRASTIM [Concomitant]
     Active Substance: PEGFILGRASTIM
     Route: 058
     Dates: end: 20240906
  16. PEGFILGRASTIM [Concomitant]
     Active Substance: PEGFILGRASTIM
     Route: 058
     Dates: start: 20240816, end: 20240817
  17. ALLOPURINOL [Concomitant]
     Active Substance: ALLOPURINOL
     Indication: Prophylaxis
     Dosage: 300 MG, 1X/DAY
     Route: 048
     Dates: start: 20240724
  18. SODIUM CHLORIDE [Concomitant]
     Active Substance: SODIUM CHLORIDE
     Indication: Pyrexia
     Dosage: 1000 ML, SINGLE
     Route: 042
     Dates: start: 20240811, end: 20240811
  19. SODIUM CHLORIDE [Concomitant]
     Active Substance: SODIUM CHLORIDE
     Dosage: 1000 ML
     Route: 042
     Dates: start: 20200910, end: 20200910
  20. INSULIN ASPART [Concomitant]
     Active Substance: INSULIN ASPART
     Indication: Diabetes mellitus
     Dosage: 6 IU, 1X/DAY
     Route: 058
     Dates: start: 20240724
  21. INSULIN ASPART [Concomitant]
     Active Substance: INSULIN ASPART
     Dosage: 2 IU, 1X/DAY
     Route: 058
     Dates: start: 20240729
  22. AMOXICILLIN\CLAVULANATE POTASSIUM [Concomitant]
     Active Substance: AMOXICILLIN\CLAVULANATE POTASSIUM
     Indication: C-reactive protein increased
     Dosage: 500 MG EVERY 0.33 DAY
     Route: 048
     Dates: start: 20240709, end: 20240725
  23. ZOLPIDEM [Concomitant]
     Active Substance: ZOLPIDEM TARTRATE
     Indication: Insomnia
     Dosage: 10 MG, AS NEEDED
     Route: 048
     Dates: start: 20240712
  24. ZOLPIDEM [Concomitant]
     Active Substance: ZOLPIDEM TARTRATE
     Dosage: 10 MG
     Route: 048
     Dates: start: 20240828
  25. GABAPENTIN [Concomitant]
     Active Substance: GABAPENTIN
     Indication: Pain
     Dosage: 600 MG EVERY 0.33 DAY
     Route: 048
     Dates: start: 20240722, end: 20240816
  26. GABAPENTIN [Concomitant]
     Active Substance: GABAPENTIN
     Dosage: 1500 MG
     Route: 048
  27. GABAPENTIN [Concomitant]
     Active Substance: GABAPENTIN
     Dosage: FREQ:.33 D;
     Route: 048
  28. GABAPENTIN [Concomitant]
     Active Substance: GABAPENTIN
     Dosage: 300 MG
     Route: 048
  29. GABAPENTIN [Concomitant]
     Active Substance: GABAPENTIN
     Dosage: FREQ:.5 D;
     Route: 048
  30. GABAPENTIN [Concomitant]
     Active Substance: GABAPENTIN
     Dosage: FREQ:.33 D;
     Route: 048
  31. GABAPENTIN [Concomitant]
     Active Substance: GABAPENTIN
     Dosage: 1200 MG
  32. FERROSULFAT [Concomitant]
     Dosage: 100 MG, 1X/DAY
     Route: 048
     Dates: start: 20240630, end: 20240725
  33. VALACYCLOVIR HYDROCHLORIDE [Concomitant]
     Active Substance: VALACYCLOVIR HYDROCHLORIDE
     Dosage: 500 MG 2X/DAY (EVERY 0.5 DAY)
     Route: 048
     Dates: start: 20240724
  34. MORPHINE HYDROCHLORIDE [Concomitant]
     Active Substance: MORPHINE HYDROCHLORIDE
     Indication: Arthralgia
     Dosage: 10 MG, AS NEEDED
     Route: 048
     Dates: start: 20240609
  35. CALCIUM [Concomitant]
     Active Substance: CALCIUM
     Dosage: 400 MG 2X/DAY (EVERY 0.5 DAY)
     Route: 048
     Dates: start: 20240715
  36. IRON POLYMALTOSE [Concomitant]
     Active Substance: IRON POLYMALTOSE
     Indication: Anaemia
     Dosage: 186 ML, SINGLE
     Route: 042
     Dates: start: 20240811, end: 20240811
  37. IRON POLYMALTOSE [Concomitant]
     Active Substance: IRON POLYMALTOSE
     Dosage: 268 ML, SINGLE
     Route: 042
     Dates: start: 20240811, end: 20240811
  38. IRON POLYMALTOSE [Concomitant]
     Active Substance: IRON POLYMALTOSE
     Dosage: 265 ML, SINGLE
     Route: 042
     Dates: start: 20240812, end: 20240812
  39. LACTULOSE [Concomitant]
     Active Substance: LACTULOSE
     Indication: Constipation
     Dosage: 15 ML 2X/DAY (EVERY 0.5 DAY)
     Route: 048
     Dates: start: 20240703
  40. LACTULOSE [Concomitant]
     Active Substance: LACTULOSE
     Dates: end: 20240828
  41. LACTULOSE [Concomitant]
     Active Substance: LACTULOSE
     Dosage: 15 ML
     Route: 048
     Dates: start: 20240828
  42. PENICILLIN G [Concomitant]
     Active Substance: PENICILLIN G
     Indication: Infection
     Dosage: 3 G, 1X/DAY
     Route: 042
     Dates: start: 20240811
  43. ONDANSETRON [Concomitant]
     Active Substance: ONDANSETRON
     Dosage: 8 MG 2X/DAY (EVERY 0.5 DAY)
     Route: 048
     Dates: start: 20240724, end: 20240726
  44. ONDANSETRON [Concomitant]
     Active Substance: ONDANSETRON
     Dosage: FREQ:.5 D;
     Route: 048
     Dates: start: 20240903
  45. ONDANSETRON [Concomitant]
     Active Substance: ONDANSETRON
     Dosage: FREQ:.5 D;
     Route: 048
     Dates: start: 20240813, end: 20240815
  46. TINZAPARIN [Concomitant]
     Active Substance: TINZAPARIN
     Dosage: 4500 IU, 1X/DAY
     Route: 058
     Dates: start: 20240630, end: 20240725
  47. POLYETHYLENE GLYCOL 3350\POTASSIUM CHLORIDE\SODIUM BICARBONATE\SODIUM [Concomitant]
     Active Substance: POLYETHYLENE GLYCOL 3350\POTASSIUM CHLORIDE\SODIUM BICARBONATE\SODIUM CHLORIDE
     Indication: Constipation
     Dosage: 1 DF, AS NEEDED
     Dates: start: 20240725
  48. ACETAMINOPHEN [Concomitant]
     Active Substance: ACETAMINOPHEN
     Indication: Pain
     Dosage: 1 G
     Route: 048
     Dates: start: 20240723, end: 20240723
  49. ACETAMINOPHEN [Concomitant]
     Active Substance: ACETAMINOPHEN
     Dosage: 1000 MG 2X/DAY (EVERY 0.5 DAY)
     Route: 048
     Dates: start: 20240630
  50. MAGNESIUMHYDROXIDE [Concomitant]
     Indication: Constipation
     Dosage: 1000 MG, 1X/DAY
     Route: 048
     Dates: start: 20230630
  51. CETIRIZINE HYDROCHLORIDE [Concomitant]
     Active Substance: CETIRIZINE HYDROCHLORIDE
     Dosage: 10 MG, 1X/DAY
     Route: 048
     Dates: start: 20240723, end: 20240723
  52. CETIRIZINE HYDROCHLORIDE [Concomitant]
     Active Substance: CETIRIZINE HYDROCHLORIDE
     Dosage: 10 MG
     Route: 048
  53. CETIRIZINE HYDROCHLORIDE [Concomitant]
     Active Substance: CETIRIZINE HYDROCHLORIDE
     Dosage: 10 MG
     Route: 048
  54. CETIRIZINE HYDROCHLORIDE [Concomitant]
     Active Substance: CETIRIZINE HYDROCHLORIDE
     Dosage: 10 MG
     Route: 048
  55. CETIRIZINE HYDROCHLORIDE [Concomitant]
     Active Substance: CETIRIZINE HYDROCHLORIDE
     Dosage: 10 MG
     Route: 048
     Dates: start: 20240910, end: 20240910
  56. CETIRIZINE HYDROCHLORIDE [Concomitant]
     Active Substance: CETIRIZINE HYDROCHLORIDE
     Dosage: 10 MG
     Route: 048
  57. CETIRIZINE HYDROCHLORIDE [Concomitant]
     Active Substance: CETIRIZINE HYDROCHLORIDE
     Dosage: 10 MG
     Route: 048
     Dates: start: 20240903, end: 20240903
  58. SODIUM PICOSULFATE [Concomitant]
     Active Substance: SODIUM PICOSULFATE
     Indication: Constipation
     Dosage: UNK, 2X/DAY
     Route: 048
     Dates: start: 20240703, end: 20240822
  59. PANTOPRAZOLE [Concomitant]
     Active Substance: PANTOPRAZOLE
     Dosage: 40 MG 2X/DAY (EVERY 0.5 DAY)
     Route: 048
     Dates: start: 20240612, end: 20240725
  60. PANTOPRAZOLE [Concomitant]
     Active Substance: PANTOPRAZOLE
     Dosage: 40 MG, 1X/DAY
     Route: 048
     Dates: start: 20240630
  61. FLUCONAZOLE [Concomitant]
     Active Substance: FLUCONAZOLE
     Indication: Candida infection
     Dosage: 400 MG, 1X/DAY
     Route: 048
     Dates: start: 20240731, end: 20240804
  62. FLUCONAZOLE [Concomitant]
     Active Substance: FLUCONAZOLE
     Dosage: 100 MG
     Route: 048
     Dates: end: 20240820
  63. MORPHINE HYDROCHLORIDE [Concomitant]
     Active Substance: MORPHINE HYDROCHLORIDE
     Indication: Pain
     Dosage: 0.5 ML, AS NEEDED
     Route: 042
     Dates: start: 20240630, end: 20240725
  64. SULFAMETHOXAZOLE\TRIMETHOPRIM [Concomitant]
     Active Substance: SULFAMETHOXAZOLE\TRIMETHOPRIM
     Indication: Prophylaxis
     Dosage: 1 DF (TABLET), DAILY
     Route: 048
     Dates: start: 20240724
  65. LOSARTAN [Concomitant]
     Active Substance: LOSARTAN
     Indication: Hypertension
     Dosage: 50 MG, 1X/DAY
     Route: 048
     Dates: start: 20240501, end: 20240903
  66. METOPROLOL SUCCINATE [Concomitant]
     Active Substance: METOPROLOL SUCCINATE
     Indication: Tachycardia
     Dosage: 50 MG, 1X/DAY
     Route: 048
     Dates: start: 20240624
  67. INSULIN GLARGINE [Concomitant]
     Active Substance: INSULIN GLARGINE
     Indication: Type 2 diabetes mellitus
     Dosage: 38 IU, 1X/DAY
     Route: 058
     Dates: start: 20210119, end: 20240811
  68. INSULIN GLARGINE [Concomitant]
     Active Substance: INSULIN GLARGINE
     Dosage: 42 IU
     Route: 058
     Dates: start: 20240811, end: 20240904
  69. INSULIN GLARGINE [Concomitant]
     Active Substance: INSULIN GLARGINE
     Dosage: 46 IU
     Route: 058
     Dates: start: 20240904
  70. IBUPROFEN [Concomitant]
     Active Substance: IBUPROFEN
     Indication: Pain
     Dosage: 400 MG, AS NEEDED
     Route: 048
     Dates: start: 20240709, end: 20240725
  71. HEPARINOID [Concomitant]
     Indication: Superficial vein thrombosis
     Dosage: UNK, AS NEEDED
     Dates: start: 20240820
  72. FUROSEMIDE [Concomitant]
     Active Substance: FUROSEMIDE
     Dates: start: 20240915
  73. MORPHINE [Concomitant]
     Active Substance: MORPHINE
     Indication: Pain
     Route: 048
     Dates: end: 20240909
  74. MORPHINE [Concomitant]
     Active Substance: MORPHINE
     Dosage: FREQ:.5 D;
     Route: 048
  75. GLOFITAMAB [Concomitant]
     Active Substance: GLOFITAMAB
     Dates: start: 20240821
  76. POLATUZUMAB VEDOTIN [Concomitant]
     Active Substance: POLATUZUMAB VEDOTIN
     Indication: Diffuse large B-cell lymphoma
     Route: 042
     Dates: start: 20240725
  77. BISACODYL [Concomitant]
     Active Substance: BISACODYL
     Route: 048
     Dates: start: 20240822
  78. MAGNESIUM [Concomitant]
     Active Substance: MAGNESIUM
  79. RITUXIMAB [Concomitant]
     Active Substance: RITUXIMAB
     Indication: Diffuse large B-cell lymphoma
     Route: 042
     Dates: start: 20240724
  80. RITUXIMAB [Concomitant]
     Active Substance: RITUXIMAB
     Route: 042
     Dates: start: 20240724
  81. POTASSIUM CHLORIDE [Concomitant]
     Active Substance: POTASSIUM CHLORIDE
     Route: 048
  82. METOPROLOL [Concomitant]
     Active Substance: METOPROLOL
     Indication: Tachycardia
     Route: 048
     Dates: start: 20240903
  83. BIOCLAVID [Concomitant]
     Active Substance: AMOXICILLIN\CLAVULANIC ACID
     Indication: C-reactive protein increased
     Dosage: FREQ:.33 D;
     Route: 048
     Dates: start: 20240709, end: 20240725
  84. CLOTRIMAZOLE [Concomitant]
     Active Substance: CLOTRIMAZOLE
     Indication: Vaginal infection
     Dosage: 10 OTHER
     Route: 061
     Dates: start: 20240828
  85. DEXAMETHASONE [Concomitant]
     Active Substance: DEXAMETHASONE
     Route: 042
  86. DEXAMETHASONE [Concomitant]
     Active Substance: DEXAMETHASONE
     Route: 042
  87. DEXAMETHASONE [Concomitant]
     Active Substance: DEXAMETHASONE
     Route: 042
     Dates: start: 20240910, end: 20240910

REACTIONS (3)
  - Febrile neutropenia [Recovered/Resolved]
  - Pleural effusion [Recovered/Resolved]
  - Infection [Recovered/Resolved]

NARRATIVE: CASE EVENT DATE: 20240805
